FAERS Safety Report 10041576 (Version 1)
Quarter: 2014Q1

REPORT INFORMATION
  Report Type: Spontaneous
  Country: US (occurrence: US)
  Receive Date: 20140327
  Receipt Date: 20140327
  Transmission Date: 20141002
  Serious: No
  Sender: FDA-Public Use
  Company Number: US-PFIZER INC-2014086104

PATIENT
  Sex: Female

DRUGS (1)
  1. EFFEXOR [Suspect]
     Dosage: UNK

REACTIONS (7)
  - Poor quality drug administered [Unknown]
  - Product quality issue [Unknown]
  - Cold sweat [Unknown]
  - Palpitations [Unknown]
  - Hot flush [Unknown]
  - Feeling abnormal [Unknown]
  - Food poisoning [Unknown]
